FAERS Safety Report 5292211-0 (Version None)
Quarter: 2007Q2

REPORT INFORMATION
  Report Type: 
  Country: None (occurrence: None)
  Receive Date: 20070410
  Receipt Date: 20070330
  Transmission Date: 20071010
  Serious: Yes (Other)
  Sender: FDA-Public Use
  Company Number: US-ROCHE-459250

PATIENT
  Age: 61 Year
  Sex: Female
  Weight: 79.8 kg

DRUGS (4)
  1. PEG-INTERFERON ALFA 2A (RO 25-8310) [Suspect]
     Dosage: FORM REPORTED AS INJECTABLE SOLUTION.
     Route: 058
     Dates: start: 20060314, end: 20060711
  2. RIBAVIRIN [Suspect]
     Dosage: 200 MG AM AND 400 MG PM.
     Route: 048
     Dates: start: 20060314, end: 20060725
  3. LUNESTA [Suspect]
     Indication: INSOMNIA
     Route: 048
     Dates: start: 20060606, end: 20061024
  4. PROCRIT [Concomitant]
     Indication: ANAEMIA
     Route: 058
     Dates: start: 20060711, end: 20060719

REACTIONS (1)
  - DISORIENTATION [None]
